FAERS Safety Report 25011620 (Version 1)
Quarter: 2025Q1

REPORT INFORMATION
  Report Type: Other
  Country: HU (occurrence: HU)
  Receive Date: 20250226
  Receipt Date: 20250226
  Transmission Date: 20250409
  Serious: Yes (Other)
  Sender: ARGENX BVBA
  Company Number: HU-ROCHE-10000200538

PATIENT

DRUGS (2)
  1. VYVGART [Suspect]
     Active Substance: EFGARTIGIMOD ALFA-FCAB
     Indication: Product used for unknown indication
     Route: 065
  2. CELLCEPT [Suspect]
     Active Substance: MYCOPHENOLATE MOFETIL
     Indication: Prophylaxis against transplant rejection
     Route: 048

REACTIONS (2)
  - Precancerous condition [Unknown]
  - Myasthenia gravis [Unknown]
